FAERS Safety Report 5175351-6 (Version None)
Quarter: 2006Q4

REPORT INFORMATION
  Report Type: 
  Country: None (occurrence: None)
  Receive Date: 20061212
  Receipt Date: 20061212
  Transmission Date: 20070319
  Serious: Yes (Hospitalization)
  Sender: FDA-Public Use
  Company Number: None

PATIENT
  Age: 55 Year
  Sex: Female

DRUGS (2)
  1. DAPTOMYCIN [Suspect]
     Indication: SPINAL DISORDER
     Dosage: 325MG IV IN 100ML OVER 3
     Route: 042
  2. DAPTOMYCIN [Suspect]
     Indication: STAPHYLOCOCCAL INFECTION
     Dosage: 325MG IV IN 100ML OVER 3
     Route: 042

REACTIONS (1)
  - RHABDOMYOLYSIS [None]
